FAERS Safety Report 14902581 (Version 1)
Quarter: 2018Q2

REPORT INFORMATION
  Report Type: Spontaneous
  Country: US (occurrence: US)
  Receive Date: 20180516
  Receipt Date: 20180516
  Transmission Date: 20180711
  Serious: No
  Sender: FDA-Public Use
  Company Number: US-SA-2017SA082918

PATIENT
  Age: 66 Year
  Sex: Female

DRUGS (31)
  1. OMEPRAZOLE. [Concomitant]
     Active Substance: OMEPRAZOLE
     Indication: GASTRITIS
     Route: 065
  2. LASIX [Concomitant]
     Active Substance: FUROSEMIDE
     Indication: FLUID RETENTION
     Route: 065
  3. CLOBETASOL PROPIONATE. [Concomitant]
     Active Substance: CLOBETASOL PROPIONATE
     Indication: SKIN DISORDER
     Dosage: AS NEEDED AS NEEDED
  4. MECLIZINE [Concomitant]
     Active Substance: MECLIZINE HYDROCHLORIDE
     Indication: DIZZINESS
     Route: 065
  5. VITAMIN E [Concomitant]
     Active Substance: .ALPHA.-TOCOPHEROL
     Route: 065
  6. ACIDOPHILUS [Concomitant]
     Active Substance: LACTOBACILLUS ACIDOPHILUS
     Dosage: ONE AT BREAKFAST AND ONE AT DINNER
     Route: 065
  7. PROLIA [Concomitant]
     Active Substance: DENOSUMAB
     Indication: BONE LOSS
     Dosage: EVERY SIX MONTHS
     Route: 065
  8. VOLTAREN [Concomitant]
     Active Substance: DICLOFENAC SODIUM
     Indication: SWELLING
     Route: 065
  9. ZINC. [Concomitant]
     Active Substance: ZINC
     Route: 065
  10. MELATONIN [Concomitant]
     Active Substance: MELATONIN
     Route: 065
  11. LANTUS [Suspect]
     Active Substance: INSULIN GLARGINE
     Indication: VERTIGO
     Dosage: DOSE:60 UNIT(S)
     Route: 051
     Dates: start: 2009, end: 20170411
  12. LEVOTHYROXINE SODIUM. [Concomitant]
     Active Substance: LEVOTHYROXINE SODIUM
     Indication: THYROID DISORDER
     Dosage: TAKE ONE TAB BEFORE BREAKFAST
  13. POTASSIUM CHLORIDE. [Concomitant]
     Active Substance: POTASSIUM CHLORIDE
     Indication: BLOOD POTASSIUM DECREASED
     Route: 065
  14. VITAMIN D3 [Concomitant]
     Active Substance: CHOLECALCIFEROL
     Dosage: 5000 IU
     Route: 065
  15. SPIRONOLACTONE. [Concomitant]
     Active Substance: SPIRONOLACTONE
     Indication: FLUID RETENTION
     Route: 065
  16. VOLTAREN [Concomitant]
     Active Substance: DICLOFENAC SODIUM
     Indication: ARTHRALGIA
     Route: 065
  17. FOLIC ACID. [Concomitant]
     Active Substance: FOLIC ACID
     Route: 065
  18. HUMALOG [Concomitant]
     Active Substance: INSULIN LISPRO
     Dosage: 25 AM+ SLIDING SCALE 20 + SLIDING SCALE LUNCH 25 + SLIDING SCALE DINNER
     Route: 065
  19. PROPRANOLOL [Concomitant]
     Active Substance: PROPRANOLOL HYDROCHLORIDE
     Indication: PORTAL HYPERTENSION
     Route: 065
  20. DICLOFENAC SODIUM. [Concomitant]
     Active Substance: DICLOFENAC SODIUM
     Indication: ORAL PAIN
  21. CALCIUM WITH VITAMIN D [Concomitant]
     Active Substance: CALCIUM\VITAMIN D
     Route: 065
  22. FERROUS SULFATE. [Concomitant]
     Active Substance: FERROUS SULFATE
     Indication: ANAEMIA
     Route: 065
  23. LANTUS [Suspect]
     Active Substance: INSULIN GLARGINE
     Indication: DIABETES MELLITUS
     Dosage: DOSE:60 UNIT(S)
     Route: 051
     Dates: start: 2009, end: 20170411
  24. MAGNESIUM [Concomitant]
     Active Substance: MAGNESIUM
     Route: 065
  25. FLEXTOUCH/INSULIN DETEMIR [Concomitant]
     Route: 065
  26. XIFAXAN [Concomitant]
     Active Substance: RIFAXIMIN
     Dosage: STRENGTH : 550 MG
     Route: 065
  27. FLUOCINONIDE. [Concomitant]
     Active Substance: FLUOCINONIDE
     Indication: LICHEN PLANUS
     Dosage: AS NEEDED
  28. TRESIBA [Concomitant]
     Active Substance: INSULIN DEGLUDEC
     Route: 065
  29. LEVEMIR [Concomitant]
     Active Substance: INSULIN DETEMIR
     Indication: DIABETES MELLITUS
     Dosage: DOSE:62 UNIT(S)
     Route: 065
  30. LACTULOSE. [Concomitant]
     Active Substance: LACTULOSE
     Indication: ENCEPHALOPATHY
     Dosage: 15   30 ONCE A DAY?(TO PRODUCE 2-3 BOWEL MOVEMENTS EVERY DAY)
     Route: 065
  31. KETOCONAZOLE. [Concomitant]
     Active Substance: KETOCONAZOLE
     Indication: FUNGAL INFECTION
     Route: 065

REACTIONS (2)
  - Blood glucose increased [Recovered/Resolved]
  - Glycosylated haemoglobin increased [Recovered/Resolved]
